FAERS Safety Report 14988739 (Version 1)
Quarter: 2018Q2

REPORT INFORMATION
  Report Type: Report from Study
  Country: DE (occurrence: DE)
  Receive Date: 20180608
  Receipt Date: 20180608
  Transmission Date: 20180711
  Serious: Yes (Hospitalization)
  Sender: FDA-Public Use
  Company Number: DE-SA-2016SA230414

PATIENT
  Age: 59 Year
  Sex: Male
  Weight: 105 kg

DRUGS (2)
  1. CABAZITAXEL [Suspect]
     Active Substance: CABAZITAXEL
     Dosage: 50 MG,QCY
     Route: 042
     Dates: start: 20160922, end: 20160922
  2. CABAZITAXEL [Suspect]
     Active Substance: CABAZITAXEL
     Indication: PROSTATE CANCER METASTATIC
     Dosage: 25 MG/M2,QCY
     Route: 042
     Dates: start: 20160526, end: 20160526

REACTIONS (1)
  - Generalised oedema [Recovered/Resolved]

NARRATIVE: CASE EVENT DATE: 20160926
